FAERS Safety Report 9547944 (Version 1)
Quarter: 2013Q3

REPORT INFORMATION
  Report Type: Spontaneous
  Country: US (occurrence: US)
  Receive Date: 20130924
  Receipt Date: 20130924
  Transmission Date: 20140515
  Serious: No
  Sender: FDA-Public Use
  Company Number: US-PURDUE-USA-2012-0083925

PATIENT
  Sex: Female

DRUGS (1)
  1. MS CONTIN TABLETS [Suspect]
     Indication: PRODUCT USED FOR UNKNOWN INDICATION
     Dosage: 60 MG, BID

REACTIONS (6)
  - Drug withdrawal syndrome [Unknown]
  - Agitation [Unknown]
  - Diarrhoea [Unknown]
  - Hyperhidrosis [Unknown]
  - Abdominal pain [Unknown]
  - Vomiting [Unknown]
